FAERS Safety Report 8924914 (Version 1)
Quarter: 2012Q4

REPORT INFORMATION
  Report Type: 
  Country: TR (occurrence: TR)
  Receive Date: 20121126
  Receipt Date: 20121126
  Transmission Date: 20130627
  Serious: Yes (Other)
  Sender: FDA-Public Use
  Company Number: TR-RANBAXY-2012RR-58556

PATIENT
  Age: 31 Year
  Sex: Female

DRUGS (1)
  1. AMOXICILLIN/CLAVULANIC ACID [Suspect]
     Indication: SINUSITIS
     Dosage: UNK
     Route: 065

REACTIONS (4)
  - Enterocolitis haemorrhagic [Not Recovered/Not Resolved]
  - Colitis ulcerative [Unknown]
  - Inflammatory bowel disease [Unknown]
  - Diarrhoea haemorrhagic [Unknown]
